FAERS Safety Report 21253617 (Version 4)
Quarter: 2022Q4

REPORT INFORMATION
  Report Type: Spontaneous
  Country: US (occurrence: US)
  Receive Date: 20220825
  Receipt Date: 20221123
  Transmission Date: 20230112
  Serious: No
  Sender: FDA-Public Use
  Company Number: US-PFIZER INC-202201091173

PATIENT
  Age: 65 Year
  Sex: Female

DRUGS (7)
  1. IBRANCE [Suspect]
     Active Substance: PALBOCICLIB
     Indication: Breast cancer
     Dosage: DAILY FOR 21 DAYS, THEN 7 DAYS OFF
     Route: 048
     Dates: start: 20220725
  2. BUPROPION HYDROCHLORIDE [Concomitant]
     Active Substance: BUPROPION HYDROCHLORIDE
     Dosage: 75 MG
  3. CALCIUM 600 PLUS VITAMIN D3 [Concomitant]
     Dosage: 600 MG
  4. HERCEPTIN [Concomitant]
     Active Substance: TRASTUZUMAB
     Dosage: 150 MG
  5. LETROZOLE [Concomitant]
     Active Substance: LETROZOLE
     Dosage: 2.5 MG
  6. PERTUZUMAB\TRASTUZUMAB [Concomitant]
     Active Substance: PERTUZUMAB\TRASTUZUMAB
     Dosage: 420MG/1
  7. XGEVA [Concomitant]
     Active Substance: DENOSUMAB
     Dosage: 120 MG

REACTIONS (12)
  - Full blood count decreased [Not Recovered/Not Resolved]
  - Nausea [Unknown]
  - Hunger [Unknown]
  - Increased appetite [Unknown]
  - Diarrhoea [Unknown]
  - Dizziness [Unknown]
  - White blood cell count decreased [Not Recovered/Not Resolved]
  - Neutrophil count increased [Not Recovered/Not Resolved]
  - Tooth disorder [Unknown]
  - Dry eye [Not Recovered/Not Resolved]
  - Eye pruritus [Not Recovered/Not Resolved]
  - Lacrimation increased [Not Recovered/Not Resolved]

NARRATIVE: CASE EVENT DATE: 20220101
